FAERS Safety Report 7161975-3 (Version None)
Quarter: 2010Q4

REPORT INFORMATION
  Report Type: 
  Country: None (occurrence: None)
  Receive Date: 20101201
  Receipt Date: 20101124
  Transmission Date: 20110411
  Serious: Yes (Death)
  Sender: FDA-Public Use
  Company Number: 1000017495

PATIENT
  Sex: Male

DRUGS (1)
  1. LEXAPRO [Suspect]
     Dosage: (1 IN 1 D),ORAL
     Route: 048
     Dates: start: 20080420

REACTIONS (1)
  - RENAL FAILURE [None]
